FAERS Safety Report 19875788 (Version 1)
Quarter: 2021Q3

REPORT INFORMATION
  Report Type: Spontaneous
  Country: PT (occurrence: PT)
  Receive Date: 20210924
  Receipt Date: 20210924
  Transmission Date: 20211014
  Serious: Yes (Life-Threatening)
  Sender: FDA-Public Use
  Company Number: PT-AUROBINDO-AUR-APL-2021-039957

PATIENT
  Age: 84 Year
  Sex: Male

DRUGS (1)
  1. TRAMADOL INJECTABLE SOLUTION [Suspect]
     Active Substance: TRAMADOL
     Indication: TOOTHACHE
     Dosage: 100MG (1 TOTAL)
     Route: 042
     Dates: start: 20210829, end: 20210829

REACTIONS (1)
  - Presyncope [Recovered/Resolved]

NARRATIVE: CASE EVENT DATE: 20210829
